FAERS Safety Report 5382841-X (Version None)
Quarter: 2007Q3

REPORT INFORMATION
  Report Type: 
  Country: None (occurrence: None)
  Receive Date: 20070702
  Receipt Date: 20070418
  Transmission Date: 20080115
  Serious: No
  Sender: FDA-Public Use
  Company Number: 2007PV032827

PATIENT
  Age: 65 Year
  Sex: Male

DRUGS (3)
  1. SYMLIN [Suspect]
     Indication: TYPE 2 DIABETES MELLITUS
     Dosage: 60 MCG;TID;SC
     Route: 058
     Dates: start: 20070201
  2. NOVOLOG [Concomitant]
  3. LEVEMIR [Concomitant]

REACTIONS (1)
  - INJECTION SITE DISCOMFORT [None]
